FAERS Safety Report 10184561 (Version 2)
Quarter: 2014Q2

REPORT INFORMATION
  Report Type: Spontaneous
  Country: US (occurrence: US)
  Receive Date: 20140521
  Receipt Date: 20140521
  Transmission Date: 20141212
  Serious: Yes (Hospitalization)
  Sender: FDA-Public Use
  Company Number: US-BEH-2014041991

PATIENT
  Age: 39 Year
  Sex: Female
  Weight: 118 kg

DRUGS (27)
  1. ZEMAIRA [Suspect]
     Indication: ALPHA-1 ANTI-TRYPSIN DEFICIENCY
     Dosage: EVERY WEDNESDAY
     Route: 042
  2. TEGRETOL [Concomitant]
  3. CELEXA [Concomitant]
     Dosage: 1 TAB
     Route: 048
  4. ATIVAN [Concomitant]
     Route: 048
  5. AMBIEN [Concomitant]
     Route: 048
  6. SPIRIVA [Concomitant]
     Dosage: 1 PUFF
     Route: 055
  7. ZAFIRLUKAST [Concomitant]
     Route: 048
  8. ADVAIR [Concomitant]
     Dosage: 500-50 MCG, 1 PUFF BY MOUTH
     Route: 055
  9. PREDNISONE [Concomitant]
     Route: 048
  10. ALBUTEROL [Concomitant]
     Dosage: AS NEEDED
     Route: 055
  11. CALCIUM CARBONATE [Concomitant]
     Route: 048
  12. FUROSEMIDE [Concomitant]
     Dosage: START TAKING AFTER THE 7 DAYS OF 60 TWICE DAILY IS COMPLETED
     Route: 048
  13. HYDROCODONE-ACETAMINOPHEN [Concomitant]
     Indication: PAIN
     Dosage: 1-2 TABS EVERY 6 HOURS AS NEEDED
     Route: 048
  14. ACETAMINOPHEN [Concomitant]
     Dosage: AS NEEDED
     Route: 048
  15. VENTOLIN HFA [Concomitant]
     Indication: WHEEZING
     Dosage: 2 PUFFS, AS NEEDED
     Route: 055
  16. ATROVENT HFA [Concomitant]
     Dosage: 2 PUFFS
     Route: 055
  17. CYANOCOBALAMIN [Concomitant]
  18. CYCLOBENZAPRINE [Concomitant]
     Dosage: AS NEEDED
     Route: 048
  19. FERROUS SULFATE [Concomitant]
     Route: 048
  20. FLUVOXAMINE [Concomitant]
     Dosage: 1 AT BEDTIME AND MAY TAKE 1/2 DAILY IN AM PRIOR TO MENSES
  21. FOLIC ACID [Concomitant]
     Route: 048
  22. MULTIVITAMIN [Concomitant]
     Route: 048
  23. STOOL SOFTENER [Concomitant]
     Route: 048
  24. OXCARBAZEPINE [Concomitant]
     Route: 048
  25. PANTOPRAZOLE [Concomitant]
     Route: 048
  26. POTASSIUM PO [Concomitant]
     Route: 048
  27. ROPINIROLE [Concomitant]
     Dosage: PM
     Route: 048

REACTIONS (2)
  - Hypoglycaemia [Recovering/Resolving]
  - Syncope [Recovering/Resolving]
